FAERS Safety Report 6592553-2 (Version None)
Quarter: 2010Q1

REPORT INFORMATION
  Report Type: 
  Country: None (occurrence: None)
  Receive Date: 20100221
  Receipt Date: 20091027
  Transmission Date: 20100710
  Serious: No
  Sender: FDA-Public Use
  Company Number: US-ALLERGAN-0914875US

PATIENT
  Age: 38 Year
  Sex: Female

DRUGS (4)
  1. BOTOX COSMETIC [Suspect]
     Indication: SKIN WRINKLING
     Dosage: 48 UNITS, UNK
     Dates: start: 20090805, end: 20080805
  2. BOTOX COSMETIC [Suspect]
     Dosage: 10 UNITS, UNK
     Dates: start: 20090811, end: 20090811
  3. BOTOX COSMETIC [Suspect]
     Dosage: 14 UNITS, UNK
     Dates: start: 20090902, end: 20090902
  4. BOTOX COSMETIC [Suspect]
     Dosage: 45 UNITS, UNK
     Dates: start: 20091002, end: 20091002

REACTIONS (1)
  - DRUG INEFFECTIVE [None]
